FAERS Safety Report 14458336 (Version 2)
Quarter: 2018Q1

REPORT INFORMATION
  Report Type: Spontaneous
  Country: RO (occurrence: RO)
  Receive Date: 20180130
  Receipt Date: 20180308
  Transmission Date: 20180509
  Serious: Yes (Other)
  Sender: FDA-Public Use
  Company Number: RO-MYLANLABS-2018M1005152

PATIENT
  Age: 28 Year
  Sex: Female

DRUGS (2)
  1. CLINDAMYCIN. [Suspect]
     Active Substance: CLINDAMYCIN
     Indication: SKIN LESION
     Dosage: UNK
     Route: 061
  2. INFLIXIMAB RECOMBINANT [Suspect]
     Active Substance: INFLIXIMAB
     Indication: CROHN^S DISEASE
     Dosage: 5 MG/KG, UNK
     Route: 042

REACTIONS (2)
  - Acute generalised exanthematous pustulosis [Recovering/Resolving]
  - Acne [Recovering/Resolving]
